FAERS Safety Report 24623258 (Version 2)
Quarter: 2025Q1

REPORT INFORMATION
  Report Type: Other
  Country: US (occurrence: US)
  Receive Date: 20241115
  Receipt Date: 20250102
  Transmission Date: 20250408
  Serious: Yes (Life-Threatening)
  Sender: APOTEX
  Company Number: US-APOTEX-2024AP017526

PATIENT

DRUGS (1)
  1. LISDEXAMFETAMINE [Suspect]
     Active Substance: LISDEXAMFETAMINE
     Indication: Attention deficit hyperactivity disorder
     Route: 065

REACTIONS (19)
  - Change in sustained attention [Unknown]
  - Anger [Unknown]
  - Central nervous system stimulation [Unknown]
  - Disturbance in attention [Unknown]
  - Emotional disorder [Unknown]
  - Crying [Unknown]
  - Hyperventilation [Unknown]
  - Personality change [Unknown]
  - Disinhibition [Unknown]
  - Condition aggravated [Unknown]
  - Product availability issue [Unknown]
  - Product substitution issue [Unknown]
  - Therapeutic response changed [Unknown]
  - Affect lability [Unknown]
  - Anxiety [Unknown]
  - Hypertension [Unknown]
  - Insomnia [Unknown]
  - Mania [Unknown]
  - Depression [Unknown]

NARRATIVE: CASE EVENT DATE: 20241009
